FAERS Safety Report 4375127-3 (Version None)
Quarter: 2004Q2

REPORT INFORMATION
  Report Type: 
  Country: None (occurrence: None)
  Receive Date: 20040603
  Receipt Date: 20040512
  Transmission Date: 20050107
  Serious: Yes (Life-Threatening)
  Sender: FDA-Public Use
  Company Number: FR-JNJFOC-20040205723

PATIENT
  Age: 93 Year
  Sex: Female

DRUGS (8)
  1. REMINYL [Suspect]
     Indication: DEMENTIA ALZHEIMER'S TYPE
     Dosage: 8 MG, ORAL
     Route: 048
     Dates: start: 20040122, end: 20040129
  2. RISPERDAL [Suspect]
     Dosage: 1 MG, ORAL
     Route: 048
     Dates: start: 20040123, end: 20040128
  3. SELOKEN (METOPROLOL TARTRATE) UNKNOWN [Suspect]
     Dosage: 50 MG, ORAL
     Route: 048
     Dates: start: 20040128, end: 20040128
  4. EBIXA (MEMANTINE HYDROCHLORIDE) [Concomitant]
  5. HEMIGOXINE (DIGOXIN) [Concomitant]
  6. OMEPRAZOLE [Concomitant]
  7. IMOVANE (ZOPICLONE) [Concomitant]
  8. FLUCONAZOLE [Concomitant]

REACTIONS (7)
  - ANOREXIA [None]
  - BRADYARRHYTHMIA [None]
  - DRUG INEFFECTIVE [None]
  - DRUG INTERACTION [None]
  - GENERAL PHYSICAL HEALTH DETERIORATION [None]
  - OVERDOSE [None]
  - SPEECH DISORDER [None]
